FAERS Safety Report 11938876 (Version 1)
Quarter: 2016Q1

REPORT INFORMATION
  Report Type: Report from Study
  Country: JP (occurrence: JP)
  Receive Date: 20160122
  Receipt Date: 20160122
  Transmission Date: 20160526
  Serious: Yes (Other)
  Sender: FDA-Public Use
  Company Number: JP-GLAXOSMITHKLINE-A201211860

PATIENT
  Age: 67 Year
  Sex: Female

DRUGS (14)
  1. BENZALIN [Concomitant]
     Active Substance: NITRAZEPAM
     Indication: DEPRESSION
     Route: 048
     Dates: end: 20120416
  2. CILOSTATE [Concomitant]
     Route: 048
     Dates: start: 20120417, end: 20120424
  3. ZYPREXA [Concomitant]
     Active Substance: OLANZAPINE
     Indication: DEPRESSION
     Route: 048
     Dates: start: 20120404, end: 20120410
  4. LAMOTRIGINE. [Suspect]
     Active Substance: LAMOTRIGINE
     Indication: BIPOLAR DISORDER
     Route: 048
     Dates: start: 20120404, end: 20120416
  5. LAMOTRIGINE. [Suspect]
     Active Substance: LAMOTRIGINE
     Indication: BIPOLAR DISORDER
     Route: 048
     Dates: start: 20120417, end: 20120424
  6. CYMBALTA [Concomitant]
     Active Substance: DULOXETINE HYDROCHLORIDE
     Indication: DEPRESSION
     Route: 048
     Dates: start: 20120404, end: 20120416
  7. BAYASPIRIN [Concomitant]
     Active Substance: ASPIRIN
     Route: 048
     Dates: end: 20120424
  8. CYMBALTA [Concomitant]
     Active Substance: DULOXETINE HYDROCHLORIDE
     Indication: DEPRESSION
     Route: 048
     Dates: start: 20120417, end: 20120424
  9. ZYPREXA [Concomitant]
     Active Substance: OLANZAPINE
     Indication: MANIA
     Route: 048
     Dates: start: 20120411, end: 20120424
  10. REFLEX [Concomitant]
     Active Substance: MIRTAZAPINE
     Indication: DEPRESSION
     Route: 048
     Dates: start: 20120418, end: 20120424
  11. BENZALIN [Concomitant]
     Active Substance: NITRAZEPAM
     Indication: DEPRESSION
     Route: 048
     Dates: start: 20120417, end: 20120424
  12. PANALDINE [Concomitant]
     Active Substance: TICLOPIDINE HYDROCHLORIDE
     Route: 048
     Dates: end: 20120416
  13. MEILAX [Concomitant]
     Active Substance: ETHYL LOFLAZEPATE
     Indication: DEPRESSION
     Route: 048
     Dates: start: 20120404, end: 20120424
  14. U-PAN [Concomitant]
     Active Substance: LORAZEPAM
     Indication: DEPRESSION
     Route: 048
     Dates: start: 20120419

REACTIONS (1)
  - Bipolar disorder [Recovering/Resolving]

NARRATIVE: CASE EVENT DATE: 20120423
